FAERS Safety Report 9065086 (Version 1)
Quarter: 2013Q1

REPORT INFORMATION
  Report Type: Report from Study
  Country: US (occurrence: US)
  Receive Date: 20130130
  Receipt Date: 20130130
  Transmission Date: 20140127
  Serious: No
  Sender: FDA-Public Use
  Company Number: US-ABBOTT-12P-163-0969500-00

PATIENT
  Age: 51 Year
  Sex: Male

DRUGS (5)
  1. HUMIRA 40 MG/0.8 ML PEN [Suspect]
     Indication: CROHN^S DISEASE
  2. VITAMIN B12 [Concomitant]
     Indication: VITAMIN B12 DECREASED
     Dosage: DAILY
     Route: 060
  3. VITAMIN D [Concomitant]
     Indication: VITAMIN D DECREASED
     Dosage: 2000 IU DAILY
  4. CALCIUM [Concomitant]
     Indication: BONE DENSITY DECREASED
     Dosage: DAILY
  5. HIGH BLOOD PRESSURE MEDICATION [Concomitant]
     Indication: HYPERTENSION

REACTIONS (9)
  - Dry skin [Not Recovered/Not Resolved]
  - Erythema [Not Recovered/Not Resolved]
  - Skin exfoliation [Not Recovered/Not Resolved]
  - Crohn^s disease [Unknown]
  - Abdominal pain [Unknown]
  - Diarrhoea [Unknown]
  - Nausea [Unknown]
  - Vomiting [Unknown]
  - Gingival bleeding [Unknown]
